FAERS Safety Report 16777899 (Version 2)
Quarter: 2019Q4

REPORT INFORMATION
  Report Type: Spontaneous
  Country: CO (occurrence: CO)
  Receive Date: 20190905
  Receipt Date: 20191205
  Transmission Date: 20200122
  Serious: Yes (Death, Hospitalization)
  Sender: FDA-Public Use
  Company Number: CO-CELGENEUS-COL-20190608174

PATIENT
  Age: 85 Year
  Sex: Male

DRUGS (1)
  1. VIDAZA [Suspect]
     Active Substance: AZACITIDINE
     Indication: ACUTE MYELOID LEUKAEMIA
     Dosage: 100 MILLIGRAM
     Route: 058
     Dates: start: 20180703, end: 20191007

REACTIONS (3)
  - Immune system disorder [Recovering/Resolving]
  - Laboratory test abnormal [Recovered/Resolved]
  - Death [Fatal]

NARRATIVE: CASE EVENT DATE: 20190527
